FAERS Safety Report 8998325 (Version 1)
Quarter: 2013Q1

REPORT INFORMATION
  Report Type: Spontaneous
  Country: GB (occurrence: GB)
  Receive Date: 20130104
  Receipt Date: 20130104
  Transmission Date: 20140127
  Serious: Yes (Other)
  Sender: FDA-Public Use
  Company Number: GB-B.I. PHARMACEUTICALS,INC./RIDGEFIELD-2012-UK-01986UK

PATIENT
  Age: 83 Year
  Sex: Female
  Weight: 51 kg

DRUGS (7)
  1. DABIGATRAN [Suspect]
     Dates: start: 20121112
  2. ASPIRIN [Concomitant]
     Dates: start: 20120831, end: 20121109
  3. DIGOXIN [Concomitant]
     Dates: start: 20120905, end: 20121126
  4. FUROSEMIDE [Concomitant]
     Dates: start: 20120817, end: 20121217
  5. LEVOTHYROXINE [Concomitant]
     Dates: start: 20120907, end: 20121126
  6. OMEPRAZOLE [Concomitant]
     Dates: start: 20120831, end: 20121126
  7. RAMIPRIL [Concomitant]
     Dates: start: 20120831, end: 20121126

REACTIONS (2)
  - Anal haemorrhage [Recovered/Resolved]
  - Colitis [Unknown]
